FAERS Safety Report 6187566-9 (Version None)
Quarter: 2009Q2

REPORT INFORMATION
  Report Type: 
  Country: None (occurrence: None)
  Receive Date: 20090507
  Receipt Date: 20090429
  Transmission Date: 20091009
  Serious: Yes (Other)
  Sender: FDA-Public Use
  Company Number: 1000006113

PATIENT
  Age: 57 Year
  Sex: Female

DRUGS (6)
  1. CITALOPRAM HYDROBROMIDE [Suspect]
     Indication: DEPRESSION
     Dosage: 20 MG (20 MG, 1 IN 1 D), ORAL
     Route: 048
     Dates: start: 20080915, end: 20090312
  2. METFORMIN HCL [Concomitant]
  3. ENALAPRIL BELMAC (TABLETS) [Concomitant]
  4. HIGROTONA (TABLETS) [Concomitant]
  5. KEPPRA [Concomitant]
  6. PREVENCOR (TABLETS) [Concomitant]

REACTIONS (2)
  - CONDITION AGGRAVATED [None]
  - EPILEPSY [None]
